FAERS Safety Report 4787004-4 (Version None)
Quarter: 2005Q3

REPORT INFORMATION
  Report Type: 
  Country: None (occurrence: None)
  Receive Date: 20050930
  Receipt Date: 20050920
  Transmission Date: 20060218
  Serious: Yes (Hospitalization)
  Sender: FDA-Public Use
  Company Number: 217956

PATIENT
  Age: 64 Year
  Sex: Male
  Weight: 82.1 kg

DRUGS (3)
  1. AVASTIN [Suspect]
     Indication: TRANSITIONAL CELL CARCINOMA
     Dosage: 15 MG/KG, Q3W, INTRAVENOUS
     Route: 042
     Dates: start: 20050421, end: 20050901
  2. PACLITAXEL [Suspect]
     Indication: TRANSITIONAL CELL CARCINOMA
     Dosage: 175 MG/M2, Q3W, INTRAVENOUS
     Route: 042
     Dates: start: 20050421, end: 20050901
  3. CARBOPLATIN [Suspect]
     Indication: TRANSITIONAL CELL CARCINOMA
     Dosage: 6 AUC, Q3W, INTRAVENOUS
     Route: 042
     Dates: start: 20050421, end: 20050901

REACTIONS (3)
  - FEBRILE NEUTROPENIA [None]
  - LOBAR PNEUMONIA [None]
  - PSEUDOMONAS INFECTION [None]
